FAERS Safety Report 8924383 (Version 2)
Quarter: 2013Q1

REPORT INFORMATION
  Report Type: Spontaneous
  Country: US (occurrence: US)
  Receive Date: 20121127
  Receipt Date: 20130306
  Transmission Date: 20140127
  Serious: Yes (Hospitalization)
  Sender: FDA-Public Use
  Company Number: US-BAYER-2012-121933

PATIENT
  Age: 15 Year
  Sex: Female
  Weight: 77.1 kg

DRUGS (5)
  1. OCELLA [Suspect]
     Indication: CONTRACEPTION
     Dosage: UNK
     Dates: start: 200905, end: 201010
  2. PRILOSEC [Concomitant]
  3. LEXAPRO [Concomitant]
  4. RISPERIDONE [Concomitant]
  5. AMMONIUM LACTATE [Concomitant]

REACTIONS (2)
  - Thrombophlebitis superficial [None]
  - Thrombophlebitis superficial [None]
